FAERS Safety Report 6955370-7 (Version None)
Quarter: 2010Q3

REPORT INFORMATION
  Report Type: 
  Country: None (occurrence: None)
  Receive Date: 20100830
  Receipt Date: 20090814
  Transmission Date: 20110219
  Serious: No
  Sender: FDA-Public Use
  Company Number: US-MYLANLABS-2009S1013776

PATIENT
  Age: 60 Year
  Sex: Female
  Weight: 79.83 kg

DRUGS (2)
  1. LISINOPRIL [Suspect]
     Indication: BLOOD PRESSURE INCREASED
     Route: 048
     Dates: start: 20090101, end: 20090101
  2. INDAPAMIDE [Concomitant]
     Indication: BLOOD PRESSURE INCREASED

REACTIONS (2)
  - DIZZINESS [None]
  - FEELING ABNORMAL [None]
